FAERS Safety Report 6725630-3 (Version None)
Quarter: 2010Q2

REPORT INFORMATION
  Report Type: 
  Country: None (occurrence: None)
  Receive Date: 20100514
  Receipt Date: 20100504
  Transmission Date: 20101027
  Serious: Yes (Other)
  Sender: FDA-Public Use
  Company Number: CH-ROCHE-701479

PATIENT
  Age: 5 Year
  Sex: Male

DRUGS (2)
  1. TAMIFLU [Suspect]
     Indication: H1N1 INFLUENZA
     Route: 048
     Dates: start: 20091113, end: 20091117
  2. PARACETAMOL [Concomitant]
     Dosage: SHORT TERM USE

REACTIONS (2)
  - AGITATION [None]
  - IRRITABILITY [None]
